FAERS Safety Report 9643287 (Version 1)
Quarter: 2013Q4

REPORT INFORMATION
  Report Type: Spontaneous
  Country: US (occurrence: None)
  Receive Date: 20131022
  Receipt Date: 20131022
  Transmission Date: 20140711
  Serious: Yes (Hospitalization)
  Sender: FDA-Public Use
  Company Number: 1956246

PATIENT
  Age: 39 Year
  Sex: Male

DRUGS (10)
  1. KETOROLAC [Suspect]
     Indication: APPENDICECTOMY
     Dosage: (NOT OTHERWISE SPECIFIED)
     Route: 042
  2. PROPOFOL [Concomitant]
  3. SEVOFLURANE [Concomitant]
  4. MIDAZOLAM [Concomitant]
  5. FENTANYL [Concomitant]
  6. ROCURONIUM [Concomitant]
  7. NEOSTGMINE [Concomitant]
  8. GLYCOPYRROLATE [Concomitant]
  9. FLUID [Concomitant]
  10. MORHPINE [Concomitant]

REACTIONS (2)
  - Procedural pain [None]
  - Pulmonary alveolar haemorrhage [None]
